FAERS Safety Report 9630661 (Version 2)
Quarter: 2013Q4

REPORT INFORMATION
  Report Type: Spontaneous
  Country: US (occurrence: US)
  Receive Date: 20131018
  Receipt Date: 20131031
  Transmission Date: 20140711
  Serious: Yes (Other)
  Sender: FDA-Public Use
  Company Number: US-BRISTOL-MYERS SQUIBB COMPANY-19519214

PATIENT
  Age: 70 Year
  Sex: Female

DRUGS (1)
  1. ABILIFY TABS [Suspect]

REACTIONS (1)
  - Psychotic disorder [Recovered/Resolved]
